FAERS Safety Report 9188966 (Version 1)
Quarter: 2013Q1

REPORT INFORMATION
  Report Type: Spontaneous
  Country: US (occurrence: US)
  Receive Date: 20130326
  Receipt Date: 20130326
  Transmission Date: 20140127
  Serious: Yes (Hospitalization)
  Sender: FDA-Public Use
  Company Number: US-B.I. PHARMACEUTICALS,INC./RIDGEFIELD-2013-BI-07235BP

PATIENT
  Sex: Female

DRUGS (3)
  1. PRADAXA [Suspect]
     Indication: ATRIAL FIBRILLATION
     Dosage: 300 MG
     Route: 048
  2. PRADAXA [Suspect]
     Dosage: 150 MG
     Route: 048
  3. PRADAXA [Suspect]
     Dosage: 300 MG
     Route: 048

REACTIONS (3)
  - Cerebrovascular accident [Unknown]
  - Bronchitis [Unknown]
  - Dyspnoea [Unknown]
